FAERS Safety Report 5894093-2 (Version None)
Quarter: 2008Q3

REPORT INFORMATION
  Report Type: 
  Country: None (occurrence: None)
  Receive Date: 20080923
  Receipt Date: 20080703
  Transmission Date: 20090109
  Serious: No
  Sender: FDA-Public Use
  Company Number: US-ASTRAZENECA-2007UW28984

PATIENT
  Age: 504 Month
  Sex: Female
  Weight: 136.4 kg

DRUGS (7)
  1. SEROQUEL [Suspect]
     Indication: POST-TRAUMATIC STRESS DISORDER
     Dosage: VARIOUS DOSES
     Route: 048
     Dates: start: 20030301, end: 20070101
  2. SEROQUEL [Suspect]
     Indication: OBSESSIVE-COMPULSIVE PERSONALITY DISORDER
     Dosage: VARIOUS DOSES
     Route: 048
     Dates: start: 20030301, end: 20070101
  3. SEROQUEL [Suspect]
     Indication: DEPRESSION
     Dosage: VARIOUS DOSES
     Route: 048
     Dates: start: 20030301, end: 20070101
  4. GEODON [Concomitant]
  5. RISPERDAL [Concomitant]
  6. ZYPREXA [Concomitant]
  7. LEXAPRO [Concomitant]
     Dates: start: 20040101

REACTIONS (4)
  - BLOOD CHOLESTEROL INCREASED [None]
  - DIABETES MELLITUS [None]
  - FLUID RETENTION [None]
  - WEIGHT INCREASED [None]
